FAERS Safety Report 6732051-6 (Version None)
Quarter: 2010Q2

REPORT INFORMATION
  Report Type: 
  Country: None (occurrence: None)
  Receive Date: 20100519
  Receipt Date: 20100510
  Transmission Date: 20101027
  Serious: Yes (Hospitalization)
  Sender: FDA-Public Use
  Company Number: US-ASTRAZENECA-2010SE06780

PATIENT
  Age: 803 Month
  Sex: Female
  Weight: 54.4 kg

DRUGS (3)
  1. NEXIUM [Suspect]
     Indication: GASTROOESOPHAGEAL REFLUX DISEASE
     Route: 048
     Dates: start: 20091203, end: 20100101
  2. NEXIUM [Suspect]
     Route: 048
     Dates: start: 20100204, end: 20100212
  3. VITAMINS [Concomitant]

REACTIONS (11)
  - ABDOMINAL DISTENSION [None]
  - ABDOMINAL PAIN [None]
  - ADVERSE EVENT [None]
  - BLOOD PRESSURE INCREASED [None]
  - CHEST PAIN [None]
  - DYSPEPSIA [None]
  - DYSPNOEA [None]
  - HYPOAESTHESIA [None]
  - NECK PAIN [None]
  - PAIN IN EXTREMITY [None]
  - TACHYCARDIA [None]
